FAERS Safety Report 13779722 (Version 2)
Quarter: 2017Q3

REPORT INFORMATION
  Report Type: Spontaneous
  Country: US (occurrence: US)
  Receive Date: 20170722
  Receipt Date: 20170823
  Transmission Date: 20171127
  Serious: No
  Sender: FDA-Public Use
  Company Number: US-B.I. PHARMACEUTICALS,INC./RIDGEFIELD-2017-BI-041313

PATIENT
  Age: 78 Year
  Sex: Male

DRUGS (3)
  1. FLOMAX [Suspect]
     Active Substance: TAMSULOSIN HYDROCHLORIDE
     Route: 065
  2. FLOMAX [Suspect]
     Active Substance: TAMSULOSIN HYDROCHLORIDE
     Indication: PROSTATIC DISORDER
     Route: 065
  3. MYRBETRIQ [Suspect]
     Active Substance: MIRABEGRON
     Indication: NOCTURIA
     Route: 048

REACTIONS (4)
  - Urinary retention [Recovered/Resolved]
  - Intentional product misuse [Unknown]
  - Neuropathy peripheral [Unknown]
  - Drug prescribing error [Unknown]
